FAERS Safety Report 16988617 (Version 1)
Quarter: 2019Q4

REPORT INFORMATION
  Report Type: Spontaneous
  Country: US (occurrence: US)
  Receive Date: 20190919
  Receipt Date: 20190919
  Transmission Date: 20200122
  Serious: No
  Sender: FDA-Public Use
  Company Number: None

PATIENT
  Sex: Male

DRUGS (2)
  1. FONDAPARINUX SYR++ (0.6ML) 7.5MG/.6ML AUROMEDICS PHARMA [Suspect]
     Active Substance: FONDAPARINUX
     Indication: THROMBOPHLEBITIS MIGRANS
     Route: 058
  2. FONDAPARINUX SYR++ (0.6ML) 7.5MG/.6ML AUROMEDICS PHARMA [Suspect]
     Active Substance: FONDAPARINUX
     Indication: EMBOLISM VENOUS
     Route: 058

REACTIONS (1)
  - Haemorrhage [None]
